FAERS Safety Report 7473720-2 (Version None)
Quarter: 2011Q2

REPORT INFORMATION
  Report Type: 
  Country: None (occurrence: None)
  Receive Date: 20110511
  Receipt Date: 20110504
  Transmission Date: 20111010
  Serious: Yes (Other)
  Sender: FDA-Public Use
  Company Number: FR-PFIZER INC-2011096448

PATIENT
  Age: 6 Year
  Sex: Female

DRUGS (2)
  1. ZARONTIN [Suspect]
     Indication: EPILEPSY
     Dosage: 10 ML DAILY DIVIDED INTO 2 INTAKES
     Route: 048
  2. LAMICTAL [Concomitant]

REACTIONS (1)
  - WEIGHT INCREASED [None]
